FAERS Safety Report 5955128-1 (Version None)
Quarter: 2008Q4

REPORT INFORMATION
  Report Type: 
  Country: None (occurrence: None)
  Receive Date: 20081117
  Receipt Date: 20080107
  Transmission Date: 20090506
  Serious: No
  Sender: FDA-Public Use
  Company Number: US-AMGEN-KDL254679

PATIENT
  Sex: Female
  Weight: 86.3 kg

DRUGS (12)
  1. ENBREL [Suspect]
     Indication: RHEUMATOID ARTHRITIS
     Route: 058
     Dates: start: 20040601
  2. PLAQUENIL [Concomitant]
     Route: 048
     Dates: start: 19890101
  3. TOPROL-XL [Concomitant]
  4. LISINOPRIL AND HYDROCHLOROTHIAZIDE [Concomitant]
  5. AMLODIPINE [Concomitant]
     Dates: start: 20071205
  6. FOSAMAX [Concomitant]
  7. FOLIC ACID [Concomitant]
  8. CALCIUM CITRATE [Concomitant]
  9. COENZYME Q10 [Concomitant]
  10. SELENIUM [Concomitant]
  11. MAGNESIUM SULFATE [Concomitant]
  12. ASCORBIC ACID [Concomitant]

REACTIONS (1)
  - BREATH ODOUR [None]
